FAERS Safety Report 6426709-6 (Version None)
Quarter: 2009Q4

REPORT INFORMATION
  Report Type: 
  Country: None (occurrence: None)
  Receive Date: 20091104
  Receipt Date: 20091027
  Transmission Date: 20100525
  Serious: Yes (Other)
  Sender: FDA-Public Use
  Company Number: FR-ELI_LILLY_AND_COMPANY-FR200907000785

PATIENT
  Age: 45 Year
  Sex: Male
  Weight: 132 kg

DRUGS (12)
  1. BYETTA [Suspect]
     Indication: TYPE 2 DIABETES MELLITUS
     Dosage: 5 UG, 2/D
     Route: 058
     Dates: start: 20090115, end: 20090215
  2. BYETTA [Suspect]
     Dosage: 10 UG, 2/D
     Route: 058
     Dates: start: 20090215, end: 20090626
  3. TEMERIT                            /01339101/ [Concomitant]
     Indication: HYPERTENSION
     Dosage: 5 MG, 2/D
     Route: 048
     Dates: start: 20050101
  4. ADANCOR [Concomitant]
     Indication: HYPERTENSION
     Dosage: 10 MG, 2/D
     Route: 048
     Dates: start: 20060101
  5. PLAVIX [Concomitant]
     Indication: HYPERTENSION
     Dosage: 75 MG, UNK
     Route: 048
     Dates: start: 20050101
  6. KARDEGIC [Concomitant]
     Indication: HYPERTENSION
     Dosage: 160 MG, UNK
     Route: 048
     Dates: start: 20050101
  7. NISISCO [Concomitant]
     Indication: HYPERTENSION
     Dosage: 160/12.5MG
     Route: 048
     Dates: start: 20080101
  8. ZANIDIP [Concomitant]
     Indication: HYPERTENSION
     Dosage: 20 MG, UNK
     Dates: start: 20080101
  9. TAHOR [Concomitant]
     Indication: HYPERTENSION
     Dosage: 40 MG, UNK
     Route: 048
     Dates: start: 20050101, end: 20090626
  10. VASTAREL [Concomitant]
     Indication: HYPERTENSION
     Dosage: 35 MG, 2/D
     Dates: start: 20080101, end: 20090626
  11. SEROPLEX [Concomitant]
     Indication: DEPRESSION
     Dosage: 10 MG, UNK
     Route: 048
     Dates: start: 20080101, end: 20090626
  12. TOPALGIC [Concomitant]
     Indication: BACK PAIN
     Dosage: 150 MG, 2/D
     Route: 048
     Dates: start: 20080101, end: 20090626

REACTIONS (5)
  - CYTOLYTIC HEPATITIS [None]
  - DRUG INEFFECTIVE [None]
  - HEPATITIS [None]
  - PRODUCT QUALITY ISSUE [None]
  - WEIGHT DECREASED [None]
